FAERS Safety Report 19855184 (Version 1)
Quarter: 2021Q3

REPORT INFORMATION
  Report Type: Spontaneous
  Country: US (occurrence: US)
  Receive Date: 20210919
  Receipt Date: 20210919
  Transmission Date: 20211014
  Serious: No
  Sender: FDA-Public Use
  Company Number: None

PATIENT
  Age: 64 Year
  Sex: Female
  Weight: 69.3 kg

DRUGS (5)
  1. BUPROPION HCL XL 150MG TABLET [Suspect]
     Active Substance: BUPROPION HYDROCHLORIDE
     Indication: SEASONAL AFFECTIVE DISORDER
     Dosage: ?          QUANTITY:30 TABLET(S);?
     Route: 048
     Dates: start: 20210808, end: 20210908
  2. CHLORTHALADONE 12.5 MG [Concomitant]
  3. OLMESARTAN 20 MG [Concomitant]
     Active Substance: OLMESARTAN MEDOXOMIL
  4. VITAMIN B12 [Concomitant]
     Active Substance: CYANOCOBALAMIN
  5. D [Concomitant]

REACTIONS (3)
  - Pruritus [None]
  - Urticaria [None]
  - Therapy non-responder [None]

NARRATIVE: CASE EVENT DATE: 20210909
